FAERS Safety Report 9068533 (Version 1)
Quarter: 2013Q1

REPORT INFORMATION
  Report Type: Spontaneous
  Country: US (occurrence: None)
  Receive Date: 20130212
  Receipt Date: 20130212
  Transmission Date: 20140127
  Serious: Yes (Life-Threatening)
  Sender: FDA-Public Use
  Company Number: None

PATIENT
  Age: 58 Year
  Sex: Female
  Weight: 60.78 kg

DRUGS (1)
  1. PRO AIR HFA - 90 MCG ALBUTEROL PER ACTUATION MANUFACTURED IN IRELAND - MARKETD BY TEVA [Suspect]
     Dosage: 1 SPRAY
     Route: 055

REACTIONS (1)
  - Drug ineffective [None]
